FAERS Safety Report 8856113 (Version 1)
Quarter: 2012Q4

REPORT INFORMATION
  Report Type: 
  Country: US (occurrence: US)
  Receive Date: 20121023
  Receipt Date: 20121023
  Transmission Date: 20130627
  Serious: No
  Sender: FDA-Public Use
  Company Number: US-AMGEN-USASP2012058422

PATIENT
  Sex: Male
  Weight: 185 kg

DRUGS (3)
  1. ENBREL [Suspect]
     Indication: PSORIASIS
     Dosage: 50 mg, qwk
     Route: 058
     Dates: start: 200901, end: 201003
  2. PROZAC [Concomitant]
     Dosage: UNK
  3. CLONAZEPAM [Concomitant]
     Dosage: UNK

REACTIONS (1)
  - Drug effect incomplete [Unknown]
